FAERS Safety Report 7218105-9 (Version None)
Quarter: 2011Q1

REPORT INFORMATION
  Report Type: 
  Country: None (occurrence: None)
  Receive Date: 20110110
  Receipt Date: 20110104
  Transmission Date: 20110831
  Serious: Yes (Other)
  Sender: FDA-Public Use
  Company Number: GB-MERCK-1101GBR00012

PATIENT
  Age: 90 Year
  Sex: Female
  Weight: 69 kg

DRUGS (10)
  1. LORAZEPAM [Concomitant]
     Route: 065
  2. JANUVIA [Suspect]
     Indication: BLOOD GLUCOSE INCREASED
     Route: 048
     Dates: start: 20101120, end: 20101126
  3. DOXAZOSIN MESYLATE [Concomitant]
     Route: 065
  4. SIMVASTATIN [Concomitant]
     Route: 048
  5. BECLOMETHASONE DIPROPIONATE [Concomitant]
     Route: 065
  6. BENDROFLUMETHIAZIDE [Concomitant]
     Route: 065
  7. CALCIUM POLYSTYRENE SULFONATE [Concomitant]
     Route: 065
     Dates: start: 20101126, end: 20101128
  8. GLICLAZIDE [Concomitant]
     Route: 065
     Dates: start: 20101115
  9. LISINOPRIL [Concomitant]
     Route: 048
     Dates: end: 20101125
  10. METFORMIN [Concomitant]
     Route: 065

REACTIONS (1)
  - HYPERKALAEMIA [None]
